FAERS Safety Report 8618343 (Version 2)
Quarter: 2012Q4

REPORT INFORMATION
  Report Type: 
  Country: US (occurrence: US)
  Receive Date: 20120615
  Receipt Date: 20120911
  Transmission Date: 20130627
  Serious: Yes (Hospitalization, Other)
  Sender: FDA-Public Use
  Company Number: US-RB-041314-12

PATIENT

DRUGS (1)
  1. BUPRENORPHINE [Suspect]
     Indication: PRODUCT USED FOR UNKNOWN INDICATION
     Dosage: Unknown dosage details
     Route: 065
     Dates: start: 201201, end: 201201

REACTIONS (3)
  - Poisoning [Unknown]
  - Victim of child abuse [None]
  - Off label use [None]
